FAERS Safety Report 6469726-2 (Version None)
Quarter: 2009Q4

REPORT INFORMATION
  Report Type: 
  Country: None (occurrence: None)
  Receive Date: 20091130
  Receipt Date: 20091120
  Transmission Date: 20100525
  Serious: Yes (Hospitalization)
  Sender: FDA-Public Use
  Company Number: 20090025USST

PATIENT
  Age: 23 Year
  Sex: Male

DRUGS (49)
  1. CARNITOR (LEVOCARNITINE) DOSAGE UNKNOWN [Suspect]
  2. 5-HYDROXYTRYPTOPHAN [Suspect]
  3. 1-OCTACOSANOL [Suspect]
  4. ANIRACETAM [Suspect]
  5. BACOPA MONNIERA [Suspect]
  6. BIFIDOBACTERIUM BIFIDUS [Suspect]
  7. CALAMUS [Suspect]
  8. CALCIUM [Suspect]
  9. CHROMIUM [Suspect]
  10. CHROMIUM PICOLINATE [Suspect]
  11. COENZYME Q10 [Suspect]
  12. COLA ACUMINATA [Suspect]
  13. CONJUGATED LINOLCIC ACID [Suspect]
  14. ECLIPTA ALBA [Suspect]
  15. ELETTARIA CARDAMORNUM [Suspect]
  16. FOLIC ACID [Suspect]
  17. FUCOXANTHIN [Suspect]
  18. GINGER [Suspect]
  19. GINSENG [Suspect]
  20. GLUCURONOLACTONE [Suspect]
  21. GREEN TEA EXTRACT [Suspect]
  22. GUARANA [Suspect]
  23. HOODIA GORDONI I [Suspect]
  24. HYDROCOYLE ASIATICA [Suspect]
  25. LACTOBACILLUS ACIDOPHILUS [Suspect]
  26. LEPIDIUM MEYENI I [Suspect]
  27. MAGNESIUM [Suspect]
  28. MAGNESIUM CITRATE [Suspect]
  29. MULTI-VITAMIN [Suspect]
  30. MULTI-VITAMIN [Suspect]
  31. NICOTINAMIDE [Suspect]
  32. NICOTINAMIDE ADENINE DINUCLEOTIDE [Suspect]
  33. PSYLLIUM [Suspect]
  34. RHODIOLA [Suspect]
  35. RHODIOLA ROSEA [Suspect]
  36. S-ADENOSYL-L-METHI ONINE [Suspect]
  37. SELENIUM [Suspect]
  38. SIBERIAN GINSENG [Suspect]
  39. ST JOHNS WORT [Suspect]
  40. SUCROSE [Suspect]
  41. THEOBROMINE [Suspect]
  42. TINOSPORA CORDIFOLIA [Suspect]
  43. VITAMIN A [Suspect]
  44. VITAMIN B3 [Suspect]
  45. VITAMIN B6 [Suspect]
  46. ASCORBIC ACID [Suspect]
  47. VITAMIN E [Suspect]
  48. WITHANIA SOMNIFERA [Suspect]
  49. ZINC [Suspect]

REACTIONS (1)
  - MANIA [None]
